FAERS Safety Report 18339290 (Version 3)
Quarter: 2020Q4

REPORT INFORMATION
  Report Type: Spontaneous
  Country: US (occurrence: US)
  Receive Date: 20201002
  Receipt Date: 20201021
  Transmission Date: 20210113
  Serious: No
  Sender: FDA-Public Use
  Company Number: US-ALLERGAN-2037593US

PATIENT
  Sex: Female

DRUGS (3)
  1. ILEVRO [Concomitant]
     Active Substance: NEPAFENAC
     Dosage: UNK, QD
     Route: 047
  2. REFRESH TEARS [Suspect]
     Active Substance: CARBOXYMETHYLCELLULOSE SODIUM
     Indication: DRY EYE
     Dosage: AS NEEDED 5 TIMES PER DAY
  3. REFRESH OPTIVE ADVANCED [Suspect]
     Active Substance: CARBOXYMETHYLCELLULOSE SODIUM\GLYCERIN\POLYSORBATE 80
     Indication: DRY EYE
     Dosage: 1 GTT
     Route: 047
     Dates: start: 202009, end: 202009

REACTIONS (6)
  - Entropion [Unknown]
  - Eye irritation [Recovered/Resolved]
  - Expired product administered [Unknown]
  - Ocular discomfort [Recovered/Resolved]
  - Product administration error [Unknown]
  - Eye pain [Recovered/Resolved]

NARRATIVE: CASE EVENT DATE: 202009
